FAERS Safety Report 4609925-5 (Version None)
Quarter: 2005Q1

REPORT INFORMATION
  Report Type: 
  Country: None (occurrence: None)
  Receive Date: 20050314
  Receipt Date: 20050314
  Transmission Date: 20050727
  Serious: Yes (Hospitalization)
  Sender: FDA-Public Use
  Company Number: None

PATIENT
  Age: 75 Year
  Sex: Male

DRUGS (5)
  1. AMOXICILLIN [Suspect]
     Indication: INFECTION
     Dosage: 500 MG Q 8 H [ONE COURSE]
  2. ATENOLOL [Concomitant]
  3. FUROSEMIDE [Concomitant]
  4. LOVASTATIN [Concomitant]
  5. LISINOPRIL [Concomitant]

REACTIONS (2)
  - URTICARIA [None]
  - VISION BLURRED [None]
